FAERS Safety Report 9094185 (Version 1)
Quarter: 2013Q1

REPORT INFORMATION
  Report Type: Spontaneous
  Country: US (occurrence: None)
  Receive Date: 20130214
  Receipt Date: 20130214
  Transmission Date: 20140127
  Serious: Yes (Hospitalization)
  Sender: FDA-Public Use
  Company Number: None

PATIENT
  Age: 44 Year
  Sex: Male

DRUGS (2)
  1. EXJADE 500MG NOVARTIS [Suspect]
     Indication: SICKLE CELL ANAEMIA
     Dosage: 1250
     Route: 048
     Dates: start: 201103
  2. EXJADE [Suspect]

REACTIONS (1)
  - Convulsion [None]
